FAERS Safety Report 4393584-3 (Version None)
Quarter: 2004Q3

REPORT INFORMATION
  Report Type: 
  Country: None (occurrence: None)
  Receive Date: 20040706
  Receipt Date: 20040706
  Transmission Date: 20050211
  Serious: Yes (Hospitalization)
  Sender: FDA-Public Use
  Company Number: None

PATIENT
  Age: 57 Year
  Sex: Male
  Weight: 71.2147 kg

DRUGS (2)
  1. VENLAFAXINE HCL [Suspect]
     Dosage: 75 MG PO QD
     Route: 048
  2. CLOZAPINE [Suspect]
     Dosage: 200 MG PO QAM 600 MG QHS
     Route: 048

REACTIONS (2)
  - ORTHOSTATIC HYPOTENSION [None]
  - SYNCOPE [None]
